FAERS Safety Report 10569779 (Version 3)
Quarter: 2014Q4

REPORT INFORMATION
  Report Type: Report from Study
  Country: DE (occurrence: DE)
  Receive Date: 20141107
  Receipt Date: 20141224
  Transmission Date: 20150529
  Serious: Yes (Hospitalization)
  Sender: FDA-Public Use
  Company Number: DE-ROCHE-1486322

PATIENT
  Age: 74 Year
  Sex: Female
  Weight: 70 kg

DRUGS (15)
  1. OPIPRAMOL [Concomitant]
     Active Substance: OPIPRAMOL
  2. VENLAFAXINE [Concomitant]
     Active Substance: VENLAFAXINE HYDROCHLORIDE
  3. 5-FU [Suspect]
     Active Substance: FLUOROURACIL
     Indication: COLORECTAL CANCER METASTATIC
     Route: 042
     Dates: start: 20140603
  4. ASPIRIN. [Concomitant]
     Active Substance: ASPIRIN
  5. CAPECITABINE. [Suspect]
     Active Substance: CAPECITABINE
     Indication: COLORECTAL CANCER METASTATIC
     Dosage: DATE OF LAST DOSE PRIOR TO SAE 30/APR/2014
     Route: 048
     Dates: start: 20140417, end: 20140501
  6. FOSINORM [Concomitant]
  7. TOREM [Concomitant]
     Active Substance: TORSEMIDE
     Dosage: TOTAL DAILY DOSE: 2X10 MG
     Route: 065
  8. BEVACIZUMAB [Suspect]
     Active Substance: BEVACIZUMAB
     Indication: COLORECTAL CANCER METASTATIC
     Dosage: SINGLE DOSE  (DAY 1)
     Route: 042
     Dates: start: 20140417, end: 20140417
  9. BEVACIZUMAB [Suspect]
     Active Substance: BEVACIZUMAB
     Dosage: REDUCED DOSE
     Route: 042
     Dates: start: 20140603
  10. JUNIK [Concomitant]
     Active Substance: BECLOMETHASONE DIPROPIONATE
     Dosage: TOTAL DAILY DOSE: 2X100 MG
     Route: 065
  11. SALBUTAMOL [Concomitant]
     Active Substance: ALBUTEROL
     Dosage: 2 PUFFS
     Route: 065
  12. FOLINIC ACID [Suspect]
     Active Substance: LEUCOVORIN
     Indication: COLORECTAL CANCER METASTATIC
     Dosage: LAST DOSE PRIOR TO SAE ON 18/NOV/2014.
     Route: 042
     Dates: start: 20140603
  13. AMLODIPIN [Concomitant]
     Active Substance: AMLODIPINE BESYLATE
  14. PANTOPRAZOLE [Concomitant]
     Active Substance: PANTOPRAZOLE SODIUM
  15. BELOC-ZOK MITE [Concomitant]
     Active Substance: METOPROLOL SUCCINATE

REACTIONS (2)
  - Pain [Recovered/Resolved]
  - General physical health deterioration [Recovered/Resolved]

NARRATIVE: CASE EVENT DATE: 20140501
